FAERS Safety Report 17789085 (Version 1)
Quarter: 2020Q2

REPORT INFORMATION
  Report Type: Spontaneous
  Country: FR (occurrence: FR)
  Receive Date: 20200515
  Receipt Date: 20200515
  Transmission Date: 20200714
  Serious: Yes (Other)
  Sender: FDA-Public Use
  Company Number: FR-B.I. PHARMACEUTICALS,INC./RIDGEFIELD-2020-12-023918

PATIENT

DRUGS (4)
  1. SUFENTANIL RENAUDIN [Suspect]
     Active Substance: SUFENTANIL CITRATE
     Indication: MATERNAL EXPOSURE TIMING UNSPECIFIED
     Dosage: ; IN TOTAL, SOLUTION FOR INJECTION, STRENGTH- 5 MICROGRAMMES/ML,
     Route: 064
  2. LIDOCAINE. [Suspect]
     Active Substance: LIDOCAINE
     Indication: MATERNAL EXPOSURE TIMING UNSPECIFIED
     Route: 064
  3. CATAPRESSAN [Suspect]
     Active Substance: CLONIDINE
     Indication: EPIDURAL ANAESTHESIA
     Dosage: ; IN TOTAL
     Route: 064
  4. LEVOBUPIVACAINE [Suspect]
     Active Substance: LEVOBUPIVACAINE
     Indication: EPIDURAL ANALGESIA
     Dosage: ; IN TOTAL
     Route: 064

REACTIONS (2)
  - Bradycardia foetal [Unknown]
  - Foetal exposure during pregnancy [Unknown]
